FAERS Safety Report 10264267 (Version 3)
Quarter: 2014Q3

REPORT INFORMATION
  Report Type: Spontaneous
  Country: JP (occurrence: JP)
  Receive Date: 20140627
  Receipt Date: 20140711
  Transmission Date: 20150326
  Serious: Yes (Life-Threatening, Hospitalization, Other)
  Sender: FDA-Public Use
  Company Number: JP-009507513-1406JPN012544

PATIENT
  Age: 72 Year
  Sex: Female
  Weight: 39 kg

DRUGS (10)
  1. AMANTADINE HYDROCHLORIDE. [Concomitant]
     Active Substance: AMANTADINE HYDROCHLORIDE
     Indication: CEREBRAL INFARCTION
     Dosage: 50 MG, BID
     Route: 048
     Dates: start: 20131225
  2. MAGMITT [Concomitant]
     Active Substance: MAGNESIUM OXIDE
     Indication: GASTRIC ULCER
     Dosage: 330 MG, TID
     Route: 048
  3. STROMECTOL [Suspect]
     Active Substance: IVERMECTIN
     Indication: ACARODERMATITIS
     Dosage: THE FIRST TIME, 9 MG, QD
     Route: 048
     Dates: start: 20140610, end: 20140610
  4. STROMECTOL [Suspect]
     Active Substance: IVERMECTIN
     Dosage: 9 MG A DAY,THE SECOND TIME, DIVIDED DOSE
     Route: 048
     Dates: start: 20140617, end: 20140617
  5. VALPROATE SODIUM. [Concomitant]
     Active Substance: VALPROATE SODIUM
     Indication: EPILEPSY
     Dosage: 4 G, BID
     Route: 048
     Dates: start: 20131225
  6. PHENOBAL [Concomitant]
     Active Substance: PHENOBARBITAL
     Indication: EPILEPSY
     Dosage: 0.6 G, BID
     Route: 048
     Dates: start: 20131225
  7. PROPIVERINE HYDROCHLORIDE [Concomitant]
     Active Substance: PROPIVERINE HYDROCHLORIDE
     Indication: POLLAKIURIA
     Dosage: 10 MG, QD
     Route: 048
     Dates: start: 20131225
  8. CALFINA [Concomitant]
     Indication: OSTEOPOROSIS
     Dosage: 0.25 MICROGRAM, BID
     Route: 048
     Dates: start: 20131225
  9. EXCEGRAN [Concomitant]
     Active Substance: ZONISAMIDE
     Indication: EPILEPSY
     Dosage: 100 MG, BID
     Route: 048
     Dates: start: 20131225
  10. FAMOTIDINE. [Concomitant]
     Active Substance: FAMOTIDINE
     Indication: GASTRIC ULCER
     Dosage: 20 MG, BID
     Route: 048
     Dates: start: 20131225

REACTIONS (6)
  - Pharyngeal oedema [Unknown]
  - Hepatic function abnormal [Unknown]
  - Dyspnoea [Not Recovered/Not Resolved]
  - Wheezing [Not Recovered/Not Resolved]
  - Altered state of consciousness [Unknown]
  - Respiratory failure [Not Recovered/Not Resolved]

NARRATIVE: CASE EVENT DATE: 2014
